FAERS Safety Report 15250339 (Version 1)
Quarter: 2018Q3

REPORT INFORMATION
  Report Type: Spontaneous
  Country: DK (occurrence: DK)
  Receive Date: 20180807
  Receipt Date: 20180807
  Transmission Date: 20181010
  Serious: Yes (Hospitalization, Other)
  Sender: FDA-Public Use
  Company Number: DK-MYLANLABS-2018M1060254

PATIENT
  Age: 19 Year
  Sex: Male

DRUGS (3)
  1. QUETIAPINE. [Concomitant]
     Active Substance: QUETIAPINE
     Indication: PRODUCT USED FOR UNKNOWN INDICATION
     Dosage: UNK
  2. OXCARBAZEPINE. [Concomitant]
     Active Substance: OXCARBAZEPINE
     Indication: PRODUCT USED FOR UNKNOWN INDICATION
     Dosage: UNK
  3. VALPROIC ACID. [Suspect]
     Active Substance: VALPROIC ACID
     Indication: SEIZURE
     Dosage: 1000 MG/24 HOUR; 13 MG/KG/24 HOUR

REACTIONS (5)
  - Hyperammonaemia [Recovering/Resolving]
  - Hyperammonaemic encephalopathy [Recovered/Resolved]
  - Anticonvulsant drug level above therapeutic [Unknown]
  - Somnolence [Unknown]
  - Coma [Recovered/Resolved]
